FAERS Safety Report 6091514-X (Version None)
Quarter: 2009Q1

REPORT INFORMATION
  Report Type: 
  Country: None (occurrence: None)
  Receive Date: 20090225
  Receipt Date: 20090216
  Transmission Date: 20090719
  Serious: Yes (Other)
  Sender: FDA-Public Use
  Company Number: PHHY2009JP05546

PATIENT
  Age: 70 Year
  Sex: Female

DRUGS (1)
  1. FAMVIR [Suspect]
     Dosage: 1500 MG/DAY
     Route: 048
     Dates: start: 20081212, end: 20081219

REACTIONS (2)
  - CONJUNCTIVAL HYPERAEMIA [None]
  - FACE OEDEMA [None]
